FAERS Safety Report 7049564-2 (Version None)
Quarter: 2010Q4

REPORT INFORMATION
  Report Type: 
  Country: None (occurrence: None)
  Receive Date: 20101018
  Receipt Date: 20101012
  Transmission Date: 20110411
  Serious: Yes (Disabling, Other)
  Sender: FDA-Public Use
  Company Number: US-SANOFI-AVENTIS-2010SA062633

PATIENT
  Age: 83 Year
  Sex: Male

DRUGS (2)
  1. AMARYL [Suspect]
     Indication: TYPE 2 DIABETES MELLITUS
     Route: 048
  2. PRECOSE [Suspect]
     Route: 048

REACTIONS (7)
  - DISABILITY [None]
  - EYE INJURY [None]
  - FALL [None]
  - FRACTURE [None]
  - LOSS OF CONSCIOUSNESS [None]
  - MOVEMENT DISORDER [None]
  - VISION BLURRED [None]
